FAERS Safety Report 6398335-9 (Version None)
Quarter: 2009Q4

REPORT INFORMATION
  Report Type: 
  Country: None (occurrence: None)
  Receive Date: 20091013
  Receipt Date: 20091002
  Transmission Date: 20100525
  Serious: Yes (Hospitalization)
  Sender: FDA-Public Use
  Company Number: GB-JNJFOC-20090701180

PATIENT
  Age: 25 Year
  Sex: Male

DRUGS (3)
  1. REMICADE [Suspect]
     Indication: CROHN'S DISEASE
     Route: 042
     Dates: start: 20041201, end: 20080501
  2. METHOTREXATE [Suspect]
     Indication: CROHN'S DISEASE
     Route: 030
  3. PREDNISOLONE [Concomitant]

REACTIONS (1)
  - MENINGITIS LISTERIA [None]
